FAERS Safety Report 9707525 (Version 2)
Quarter: 2013Q4

REPORT INFORMATION
  Report Type: Spontaneous
  Country: AU (occurrence: AU)
  Receive Date: 20131125
  Receipt Date: 20131216
  Transmission Date: 20140711
  Serious: Yes (Death, Other)
  Sender: FDA-Public Use
  Company Number: AU-ABBVIE-13P-008-1171211-00

PATIENT
  Age: 66 Year
  Sex: Male

DRUGS (4)
  1. LUCRIN DEPOT [Suspect]
     Indication: PROSTATE CANCER
     Route: 030
     Dates: start: 201211
  2. TARGIN [Suspect]
     Indication: PRODUCT USED FOR UNKNOWN INDICATION
  3. COSUDEX [Concomitant]
     Indication: PRODUCT USED FOR UNKNOWN INDICATION
  4. MOVICOL [Concomitant]
     Indication: PRODUCT USED FOR UNKNOWN INDICATION

REACTIONS (5)
  - Prostate cancer metastatic [Fatal]
  - Pyrexia [Unknown]
  - Back pain [Unknown]
  - Constipation [Unknown]
  - Weight decreased [Unknown]
